FAERS Safety Report 10990184 (Version 1)
Quarter: 2015Q2

REPORT INFORMATION
  Report Type: Spontaneous
  Country: NL (occurrence: NL)
  Receive Date: 20150406
  Receipt Date: 20150406
  Transmission Date: 20150821
  Serious: Yes (Other)
  Sender: FDA-Public Use
  Company Number: NL-BAYER-2015-076285

PATIENT
  Age: 35 Year
  Sex: Female

DRUGS (2)
  1. MICROGYNON 30 [Suspect]
     Active Substance: ETHINYL ESTRADIOL\LEVONORGESTREL ACETATE
  2. MIRENA [Suspect]
     Active Substance: LEVONORGESTREL
     Dosage: 20 MCG/24HR, CONT
     Route: 015
     Dates: start: 20130311, end: 20150325

REACTIONS (3)
  - Metrorrhagia [None]
  - Haemoglobin decreased [None]
  - Genital haemorrhage [None]
